FAERS Safety Report 5069588-4 (Version None)
Quarter: 2006Q3

REPORT INFORMATION
  Report Type: 
  Country: None (occurrence: None)
  Receive Date: 20060731
  Receipt Date: 20060717
  Transmission Date: 20061208
  Serious: Yes (Other)
  Sender: FDA-Public Use
  Company Number: HQWYE248421JUL06

PATIENT
  Age: 8 Year
  Sex: Female

DRUGS (2)
  1. ADVIL [Suspect]
     Indication: PYREXIA
     Dosage: 7 ML 1 X ORAL
     Route: 048
     Dates: start: 20060508, end: 20060508
  2. ACETAMINOPHEN [Concomitant]

REACTIONS (3)
  - FACE OEDEMA [None]
  - RASH ERYTHEMATOUS [None]
  - RASH MACULO-PAPULAR [None]
